FAERS Safety Report 18224829 (Version 4)
Quarter: 2020Q4

REPORT INFORMATION
  Report Type: Other
  Country: US (occurrence: US)
  Receive Date: 20200903
  Receipt Date: 20201116
  Transmission Date: 20210113
  Serious: Yes (Other)
  Sender: FDA-Public Use
  Company Number: US-ROCHE-2669346

PATIENT
  Sex: Male
  Weight: 74.91 kg

DRUGS (8)
  1. ESBRIET [Suspect]
     Active Substance: PIRFENIDONE
     Indication: IDIOPATHIC PULMONARY FIBROSIS
     Dosage: TAKE 3 TABLET(S) BY MOUTH 3 TIMES A DAY
     Route: 048
  2. FLUTICASONE. [Concomitant]
     Active Substance: FLUTICASONE
  3. GLUCOSAMINE SULFATE [Concomitant]
     Active Substance: GLUCOSAMINE SULFATE
  4. ECOTRIN [Concomitant]
     Active Substance: ASPIRIN
  5. CYANOCOBALAMIN. [Concomitant]
     Active Substance: CYANOCOBALAMIN
  6. VITAMIN D3 [Concomitant]
     Active Substance: CHOLECALCIFEROL
     Dosage: 1000 UNIT
  7. DELTASONE [Concomitant]
     Active Substance: PREDNISONE
  8. MOBIC [Concomitant]
     Active Substance: MELOXICAM

REACTIONS (1)
  - Cataract operation [Unknown]
